FAERS Safety Report 8830807 (Version 2)
Quarter: 2012Q4

REPORT INFORMATION
  Report Type: Report from Study
  Country: MX (occurrence: MX)
  Receive Date: 20121009
  Receipt Date: 20121116
  Transmission Date: 20130627
  Serious: Yes (Other)
  Sender: FDA-Public Use
  Company Number: MX-INCYTE CORPORATION-2012IN001977

PATIENT
  Sex: Female
  Weight: 75 kg

DRUGS (3)
  1. INC424 [Suspect]
     Indication: MYELOFIBROSIS
     Dosage: 20 mg, bid
     Route: 048
     Dates: start: 20120424, end: 201209
  2. PENTOXIFYLLINE [Concomitant]
     Dosage: UNK
     Dates: start: 200904, end: 201209
  3. ASPIRIN [Concomitant]

REACTIONS (1)
  - Lymph node tuberculosis [Unknown]
